FAERS Safety Report 6178676-0 (Version None)
Quarter: 2009Q2

REPORT INFORMATION
  Report Type: 
  Country: None (occurrence: None)
  Receive Date: 20090504
  Receipt Date: 20081015
  Transmission Date: 20091009
  Serious: No
  Sender: FDA-Public Use
  Company Number: US-ALEXION-A200800281

PATIENT

DRUGS (1)
  1. SOLIRIS [Suspect]
     Dosage: 900 MG, EVERY 14 DAYS
     Route: 042
     Dates: start: 20080904

REACTIONS (3)
  - EAR INFECTION [None]
  - NAUSEA [None]
  - PAIN IN EXTREMITY [None]
